FAERS Safety Report 13475121 (Version 2)
Quarter: 2017Q3

REPORT INFORMATION
  Report Type: Report from Study
  Country: US (occurrence: US)
  Receive Date: 20170424
  Receipt Date: 20170728
  Transmission Date: 20171127
  Serious: No
  Sender: FDA-Public Use
  Company Number: US-AMGEN-USASL2017057396

PATIENT
  Age: 75 Year
  Sex: Male

DRUGS (1)
  1. REPATHA [Suspect]
     Active Substance: EVOLOCUMAB
     Indication: LOW DENSITY LIPOPROTEIN INCREASED
     Dosage: 140 MG, Q2WK
     Route: 065

REACTIONS (7)
  - Rhinorrhoea [Unknown]
  - Oropharyngeal pain [Unknown]
  - Injection site pain [Recovering/Resolving]
  - Neuropathy peripheral [Unknown]
  - Wrong technique in product usage process [Unknown]
  - Pruritus [Unknown]
  - Memory impairment [Unknown]
